FAERS Safety Report 22039753 (Version 1)
Quarter: 2023Q1

REPORT INFORMATION
  Report Type: Spontaneous
  Country: GB (occurrence: GB)
  Receive Date: 20230227
  Receipt Date: 20230227
  Transmission Date: 20230418
  Serious: Yes (Other)
  Sender: FDA-Public Use
  Company Number: GB-MHRA-MED-202302201657185630-ZBMKS

PATIENT
  Age: 32 Year
  Sex: Female
  Weight: 120 kg

DRUGS (2)
  1. DOXYCYCLINE [Suspect]
     Active Substance: DOXYCYCLINE
     Indication: Chlamydial infection
     Dosage: 100 MILLIGRAM, BID
     Route: 065
     Dates: start: 20230214
  2. MIGRALEVE PINK [Concomitant]
     Indication: Headache
     Dosage: UNK
     Route: 065

REACTIONS (5)
  - Proctalgia [Not Recovered/Not Resolved]
  - Feeling hot [Recovered/Resolved]
  - COVID-19 [Unknown]
  - Tinnitus [Not Recovered/Not Resolved]
  - Headache [Recovered/Resolved]

NARRATIVE: CASE EVENT DATE: 20230215
